FAERS Safety Report 9538450 (Version 1)
Quarter: 2013Q2

REPORT INFORMATION
  Report Type: Spontaneous
  Country: US (occurrence: None)
  Receive Date: 20130510
  Receipt Date: 20130510
  Transmission Date: 20140414
  Serious: Yes (Other)
  Sender: FDA-Public Use
  Company Number: US-010952

PATIENT
  Sex: 0

DRUGS (1)
  1. PICO-SALAX [Suspect]
     Indication: BOWEL PREPARATION
     Dosage: SAME DAY DOSING

REACTIONS (1)
  - Drug ineffective [None]
